FAERS Safety Report 9398324 (Version 1)
Quarter: 2013Q3

REPORT INFORMATION
  Report Type: Spontaneous
  Country: GB (occurrence: GB)
  Receive Date: 20130712
  Receipt Date: 20130712
  Transmission Date: 20140515
  Serious: Yes (Other)
  Sender: FDA-Public Use
  Company Number: GB-GLAXOSMITHKLINE-B0905377A

PATIENT
  Age: 75 Year
  Sex: Male
  Weight: 70 kg

DRUGS (3)
  1. DUTASTERIDE [Suspect]
     Indication: BENIGN PROSTATIC HYPERPLASIA
     Dosage: 1IUAX PER DAY
     Route: 048
     Dates: start: 20030601
  2. ALFUZOSIN HYDROCHLORIDE [Concomitant]
     Dosage: 10MG PER DAY
  3. FLUTICASONE PROPIONATE [Concomitant]

REACTIONS (3)
  - Breast enlargement [Not Recovered/Not Resolved]
  - Breast mass [Not Recovered/Not Resolved]
  - Breast tenderness [Not Recovered/Not Resolved]
